FAERS Safety Report 8270001-4 (Version None)
Quarter: 2012Q2

REPORT INFORMATION
  Report Type: 
  Country: None (occurrence: None)
  Receive Date: 20120410
  Receipt Date: 20120402
  Transmission Date: 20120825
  Serious: Yes (Hospitalization)
  Sender: FDA-Public Use
  Company Number: JP-JNJFOC-20120212450

PATIENT
  Sex: Female
  Weight: 23.13 kg

DRUGS (17)
  1. SIMPONI [Suspect]
     Route: 058
     Dates: start: 20120113
  2. HOCHU-EKKI-TO [Concomitant]
     Indication: PROPHYLAXIS
     Route: 048
  3. ISODINE [Concomitant]
     Route: 048
  4. SIMPONI [Suspect]
     Indication: RHEUMATOID ARTHRITIS
     Route: 058
     Dates: start: 20120207
  5. TRACLEER [Concomitant]
     Indication: RAYNAUD'S PHENOMENON
     Route: 048
  6. MAGMITT [Concomitant]
     Route: 048
  7. RABEPRAZOLE SODIUM [Concomitant]
     Indication: PROPHYLAXIS
     Route: 048
  8. FENTANYL-100 [Concomitant]
     Indication: RHEUMATOID ARTHRITIS
     Route: 062
  9. GLAKAY [Concomitant]
     Indication: PROPHYLAXIS
     Route: 048
  10. COTRIM [Concomitant]
     Indication: PROPHYLAXIS
     Route: 048
  11. FUNGIZONE [Concomitant]
     Indication: PROPHYLAXIS
     Route: 048
  12. PREDNISOLONE [Concomitant]
     Indication: RHEUMATOID ARTHRITIS
     Route: 048
     Dates: start: 20120107
  13. NEUROTROPIN [Concomitant]
  14. LASIX [Concomitant]
  15. INDOMETHACIN [Concomitant]
     Indication: RHEUMATOID ARTHRITIS
     Route: 048
  16. ONEALFA [Concomitant]
     Indication: PROPHYLAXIS
     Route: 048
  17. ENTERONON-R [Concomitant]
     Indication: PROPHYLAXIS
     Route: 048

REACTIONS (3)
  - FALL [None]
  - POST PROCEDURAL HAEMATOMA [None]
  - FEMORAL NECK FRACTURE [None]
